FAERS Safety Report 10494832 (Version 1)
Quarter: 2014Q4

REPORT INFORMATION
  Report Type: Spontaneous
  Country: US (occurrence: None)
  Receive Date: 20141001
  Receipt Date: 20141001
  Transmission Date: 20150528
  Serious: Yes (Hospitalization)
  Sender: FDA-Public Use
  Company Number: 2014SGN01225

PATIENT
  Age: 15 Year
  Sex: Female
  Weight: 63.3 kg

DRUGS (9)
  1. CYCLOPHOSPHAMIDE (CYCLOPHOSPHAMIDE) INJECTION [Suspect]
     Active Substance: CYCLOPHOSPHAMIDE
     Indication: ANAPLASTIC LARGE-CELL LYMPHOMA
     Dosage: QCYCLE
     Route: 042
     Dates: start: 20140115, end: 20140413
  2. HYDROCORTISONE (HYDROCORTISONE ACETATE) [Suspect]
     Active Substance: HYDROCORTISONE ACETATE
     Indication: ANAPLASTIC LARGE-CELL LYMPHOMA
     Route: 037
     Dates: start: 20140115, end: 20140115
  3. DOXORUBICIN (DOXORUBICIN) INJECTION [Suspect]
     Active Substance: DOXORUBICIN
     Indication: ANAPLASTIC LARGE-CELL LYMPHOMA
     Dosage: QCYCLE
     Route: 042
     Dates: end: 20140413
  4. DEXAMETHASONE (DEXAMETHASONE) INJECTION [Suspect]
     Active Substance: DEXAMETHASONE
     Indication: ANAPLASTIC LARGE-CELL LYMPHOMA
     Dosage: QCYCLE
     Route: 048
     Dates: start: 20140115, end: 20140414
  5. CYTARABINE (CYTARABINE) INJECTION [Suspect]
     Active Substance: CYTARABINE
     Indication: ANAPLASTIC LARGE-CELL LYMPHOMA
     Dosage: QCYCLE
     Route: 042
     Dates: end: 20140323
  6. BRENTUXIMAB VEDOTIN (BRENTUXIMAB VEDOTIN) INJECTION [Suspect]
     Active Substance: BRENTUXIMAB VEDOTIN
     Indication: ANAPLASTIC LARGE-CELL LYMPHOMA
     Dosage: Q21D
     Route: 042
     Dates: end: 20140409
  7. METHOTREXATE (METHOTREXATE SODIUM) [Suspect]
     Active Substance: METHOTREXATE SODIUM
     Indication: ANAPLASTIC LARGE-CELL LYMPHOMA
     Dosage: QCYCLE
     Route: 042
     Dates: end: 20140409
  8. ETOPOSIDE (ETOPOSIDE) INJECTION [Suspect]
     Active Substance: ETOPOSIDE
     Indication: ANAPLASTIC LARGE-CELL LYMPHOMA
     Dosage: QCYCLE
     Route: 042
     Dates: end: 20140323
  9. IFOSFAMIDE (IFOSFAMIDE) INJECTION [Suspect]
     Active Substance: IFOSFAMIDE
     Indication: ANAPLASTIC LARGE-CELL LYMPHOMA
     Dosage: QCYCLE
     Route: 042
     Dates: end: 20140323

REACTIONS (3)
  - Neutropenia [None]
  - Stomatitis [None]
  - Pyrexia [None]

NARRATIVE: CASE EVENT DATE: 20140420
